FAERS Safety Report 8323328-1 (Version None)
Quarter: 2012Q2

REPORT INFORMATION
  Report Type: 
  Country: None (occurrence: None)
  Receive Date: 20120430
  Receipt Date: 20120424
  Transmission Date: 20120825
  Serious: No
  Sender: FDA-Public Use
  Company Number: US-PFIZER INC-2012039433

PATIENT
  Sex: Female
  Weight: 55 kg

DRUGS (2)
  1. LIPITOR [Suspect]
     Dosage: 10 MG (SPLITTING 20 MG TABLETS INTO HALF), UNK
  2. LIPITOR [Suspect]
     Dosage: UNK

REACTIONS (4)
  - MUSCLE ENZYME INCREASED [None]
  - MUSCULOSKELETAL PAIN [None]
  - WEIGHT DECREASED [None]
  - MYALGIA [None]
